FAERS Safety Report 10147064 (Version 2)
Quarter: 2020Q2

REPORT INFORMATION
  Report Type: Spontaneous
  Country: US (occurrence: US)
  Receive Date: 20140501
  Receipt Date: 20200518
  Transmission Date: 20200713
  Serious: No
  Sender: FDA-Public Use
  Company Number: US-PFIZER INC-2014120315

PATIENT
  Age: 60 Year
  Sex: Female
  Weight: 80.73 kg

DRUGS (2)
  1. HYDROCODONE [Concomitant]
     Active Substance: HYDROCODONE
     Indication: PAIN
     Dosage: ^10/325MG^ TWO TIMES A DAY
  2. LYRICA [Suspect]
     Active Substance: PREGABALIN
     Indication: NEUROPATHY PERIPHERAL
     Dosage: 150 MG, 2X/DAY
     Dates: start: 201001

REACTIONS (2)
  - Weight increased [Unknown]
  - Confusional state [Unknown]

NARRATIVE: CASE EVENT DATE: 2010
